FAERS Safety Report 5167624-8 (Version None)
Quarter: 2006Q4

REPORT INFORMATION
  Report Type: 
  Country: None (occurrence: None)
  Receive Date: 20061207
  Receipt Date: 20061127
  Transmission Date: 20070319
  Serious: Yes (Other)
  Sender: FDA-Public Use
  Company Number: GB-ABBOTT-06P-167-0351701-00

PATIENT
  Sex: Female

DRUGS (1)
  1. EPILIM EC TABLETS [Suspect]
     Indication: CONVULSION
     Route: 048

REACTIONS (1)
  - ANTICONVULSANT DRUG LEVEL BELOW THERAPEUTIC [None]
